FAERS Safety Report 4294385-7 (Version None)
Quarter: 2004Q1

REPORT INFORMATION
  Report Type: 
  Country: None (occurrence: None)
  Receive Date: 20040211
  Receipt Date: 20040127
  Transmission Date: 20041129
  Serious: Yes (Other)
  Sender: FDA-Public Use
  Company Number: WAES 0401USA02220

PATIENT
  Age: 66 Year
  Sex: Male
  Weight: 106 kg

DRUGS (18)
  1. [THERAPY UNSPECIFIED] [Suspect]
  2. ALLOPURINOL [Concomitant]
     Dates: end: 20030201
  3. ASPIRIN [Concomitant]
     Dates: start: 20001209, end: 20020502
  4. ASPIRIN [Concomitant]
     Dates: start: 20000101
  5. ZYRTEC [Concomitant]
     Dates: start: 20030120
  6. CHLORPHENIRAMINE MALEATE AND PSEUDOEPHEDRINE HCL [Concomitant]
     Route: 048
     Dates: start: 20030120
  7. CARDIZEM CD [Concomitant]
     Dates: start: 20000719
  8. DILTIAZEM HCL [Concomitant]
     Dates: start: 20001215
  9. COLACE [Concomitant]
  10. ALLEGRA [Concomitant]
     Dates: end: 20030120
  11. TUSSIONEX [Concomitant]
     Route: 048
     Dates: start: 20030120
  12. ZESTRIL [Concomitant]
     Dates: start: 20010621, end: 20030120
  13. ZESTRIL [Concomitant]
     Dates: start: 20030101
  14. GLUCOPHAGE [Concomitant]
     Indication: DIABETES MELLITUS NON-INSULIN-DEPENDENT
     Route: 048
     Dates: start: 20000719, end: 20030201
  15. ZANTAC [Suspect]
     Dates: start: 20030101, end: 20030610
  16. ZOCOR [Suspect]
     Route: 048
     Dates: start: 20000701, end: 20030101
  17. HYTRIN [Concomitant]
     Dates: start: 20001215
  18. HYTRIN [Concomitant]
     Dates: end: 20001214

REACTIONS (40)
  - ANAL FISSURE [None]
  - AORTIC CALCIFICATION [None]
  - BLOOD CREATINE PHOSPHOKINASE INCREASED [None]
  - BLOOD PRESSURE DECREASED [None]
  - BLOOD URINE PRESENT [None]
  - BRONCHITIS [None]
  - COORDINATION ABNORMAL [None]
  - COUGH [None]
  - CUTIS LAXA [None]
  - DIABETES MELLITUS NON-INSULIN-DEPENDENT [None]
  - DILATATION VENTRICULAR [None]
  - DISORIENTATION [None]
  - DIZZINESS [None]
  - DIZZINESS POSTURAL [None]
  - DRY SKIN [None]
  - DYSPNOEA [None]
  - ECCHYMOSIS [None]
  - FACIAL PAIN [None]
  - FATIGUE [None]
  - GASTROOESOPHAGEAL REFLUX DISEASE [None]
  - HAEMORRHOIDS [None]
  - HEADACHE [None]
  - HIATUS HERNIA [None]
  - LIVER FUNCTION TEST ABNORMAL [None]
  - NASAL CONGESTION [None]
  - OEDEMA [None]
  - PERICARDIAL DISEASE [None]
  - PERICARDIAL EFFUSION [None]
  - POLYMYOSITIS [None]
  - POSTNASAL DRIP [None]
  - PROTEIN URINE PRESENT [None]
  - RED BLOOD CELL SEDIMENTATION RATE INCREASED [None]
  - REFUSAL OF TREATMENT BY PATIENT [None]
  - RENAL CYST [None]
  - RESTRICTIVE PULMONARY DISEASE [None]
  - RHABDOMYOLYSIS [None]
  - SEBORRHOEIC KERATOSIS [None]
  - SINUS PAIN [None]
  - SLEEP APNOEA SYNDROME [None]
  - WEIGHT DECREASED [None]
